FAERS Safety Report 17048350 (Version 2)
Quarter: 2019Q4

REPORT INFORMATION
  Report Type: Spontaneous
  Country: US (occurrence: US)
  Receive Date: 20191119
  Receipt Date: 20191120
  Transmission Date: 20200122
  Serious: No
  Sender: FDA-Public Use
  Company Number: US-PFIZER INC-2019496848

PATIENT
  Age: 57 Year
  Sex: Male
  Weight: 79.38 kg

DRUGS (3)
  1. RAPAMUNE [Suspect]
     Active Substance: SIROLIMUS
     Indication: LIVER TRANSPLANT
     Dosage: 2 MG, UNK
     Dates: start: 2008
  2. RAPAMUNE [Suspect]
     Active Substance: SIROLIMUS
     Indication: LIVER DISORDER
     Dosage: 1 MG, UNK UNK [CUTTING 2 MG RAPAMUNE TABLETS IN HALF]
     Dates: start: 2008
  3. RAPAMUNE [Suspect]
     Active Substance: SIROLIMUS
     Dosage: 1 MG, 1X/DAY

REACTIONS (4)
  - Wrong technique in product usage process [Unknown]
  - Immunosuppressant drug level increased [Unknown]
  - Off label use [Unknown]
  - Product use in unapproved indication [Unknown]

NARRATIVE: CASE EVENT DATE: 2008
